FAERS Safety Report 10449885 (Version 1)
Quarter: 2014Q3

REPORT INFORMATION
  Report Type: Spontaneous
  Country: US (occurrence: None)
  Receive Date: 20140911
  Receipt Date: 20140911
  Transmission Date: 20150326
  Serious: Yes (Hospitalization)
  Sender: FDA-Public Use
  Company Number: None

PATIENT
  Age: 62 Year
  Sex: Male
  Weight: 83.92 kg

DRUGS (2)
  1. METOPROLOL SUCCINATE. [Suspect]
     Active Substance: METOPROLOL SUCCINATE
     Dosage: 1 TAB, ONCE DAILY, TAKEN BY MOUTH
     Route: 048
     Dates: start: 20140801, end: 20140909
  2. METOPROLOL SUCCINATE. [Suspect]
     Active Substance: METOPROLOL SUCCINATE
     Indication: TACHYCARDIA
     Dosage: 1 TAB, ONCE DAILY, TAKEN BY MOUTH
     Route: 048
     Dates: start: 20140801, end: 20140909

REACTIONS (5)
  - Product substitution issue [None]
  - Extrasystoles [None]
  - Heart rate increased [None]
  - Ventricular extrasystoles [None]
  - Therapeutic response changed [None]

NARRATIVE: CASE EVENT DATE: 20140812
